FAERS Safety Report 7350665-X (Version None)
Quarter: 2011Q1

REPORT INFORMATION
  Report Type: 
  Country: None (occurrence: None)
  Receive Date: 20110314
  Receipt Date: 20110105
  Transmission Date: 20110831
  Serious: No
  Sender: FDA-Public Use
  Company Number: US-B.I. PHARMACEUTICALS,INC./RIDGEFIELD-2011-BP-00463BP

PATIENT
  Sex: Male

DRUGS (6)
  1. ASPIRIN [Concomitant]
     Dosage: 81 MG
     Route: 048
  2. PRADAXA [Suspect]
     Indication: ATRIAL FIBRILLATION
     Dosage: 300 MG
     Route: 048
     Dates: start: 20101222
  3. DIGOXIN [Concomitant]
     Indication: ATRIAL FIBRILLATION
     Dosage: 125 MG
     Route: 048
  4. MULTI-VITAMIN [Concomitant]
     Indication: SUPPLEMENTATION THERAPY
     Dosage: 1 TABLET DAILY
     Route: 048
  5. CARVEDILOL [Concomitant]
     Indication: CORONARY ARTERY DISEASE
     Dosage: 25 MG
     Route: 048
  6. LIPITOR [Concomitant]
     Indication: BLOOD CHOLESTEROL INCREASED
     Dosage: 40 MG
     Route: 048

REACTIONS (3)
  - RASH MACULAR [None]
  - OEDEMA PERIPHERAL [None]
  - URTICARIA [None]
